FAERS Safety Report 20086568 (Version 1)
Quarter: 2021Q4

REPORT INFORMATION
  Report Type: Spontaneous
  Country: US (occurrence: None)
  Receive Date: 20211118
  Receipt Date: 20211118
  Transmission Date: 20220303
  Serious: No
  Sender: FDA-Public Use
  Company Number: None

PATIENT
  Age: 59 Year
  Sex: Female

DRUGS (1)
  1. HUMIRA [Suspect]
     Active Substance: ADALIMUMAB
     Dosage: OTHER FREQUENCY : OTHER;?
     Route: 058
     Dates: start: 20210614

REACTIONS (5)
  - Rash [None]
  - Injection site erythema [None]
  - Injection site warmth [None]
  - Injection site induration [None]
  - Injection site pain [None]

NARRATIVE: CASE EVENT DATE: 20210614
